FAERS Safety Report 5126897-8 (Version None)
Quarter: 2006Q4

REPORT INFORMATION
  Report Type: 
  Country: None (occurrence: None)
  Receive Date: 20060830
  Receipt Date: 20060609
  Transmission Date: 20070319
  Serious: Yes (Other)
  Sender: FDA-Public Use
  Company Number: US200606002966

PATIENT
  Sex: Female

DRUGS (3)
  1. SYMBYAX [Suspect]
     Dosage: D/F
     Dates: start: 20060527, end: 20060606
  2. WELLBUTRIN [Concomitant]
  3. PROZAC [Concomitant]

REACTIONS (1)
  - GRAND MAL CONVULSION [None]
